FAERS Safety Report 16186715 (Version 8)
Quarter: 2020Q3

REPORT INFORMATION
  Report Type: Spontaneous
  Country: US (occurrence: US)
  Receive Date: 20190411
  Receipt Date: 20200820
  Transmission Date: 20201102
  Serious: Yes (Hospitalization)
  Sender: FDA-Public Use
  Company Number: US-ACTELION-A-NJ2019-187281

PATIENT
  Age: 56 Year
  Sex: Female
  Weight: 85.26 kg

DRUGS (7)
  1. UPTRAVI [Suspect]
     Active Substance: SELEXIPAG
     Indication: PULMONARY ARTERIAL HYPERTENSION
     Dosage: 2400 MCG, BID
     Route: 048
  2. GEMFIBROZIL. [Suspect]
     Active Substance: GEMFIBROZIL
     Indication: PRODUCT USED FOR UNKNOWN INDICATION
     Route: 048
  3. UPTRAVI [Suspect]
     Active Substance: SELEXIPAG
     Dosage: 1000 MCG, BID
     Route: 048
  4. UPTRAVI [Suspect]
     Active Substance: SELEXIPAG
     Dosage: 1200 MCG, BID
     Route: 048
  5. ADEMPAS [Concomitant]
     Active Substance: RIOCIGUAT
  6. LETAIRIS [Concomitant]
     Active Substance: AMBRISENTAN
  7. ATORVASTATIN [Concomitant]
     Active Substance: ATORVASTATIN

REACTIONS (32)
  - Migraine [Not Recovered/Not Resolved]
  - Gait disturbance [Unknown]
  - Extra dose administered [Recovered/Resolved]
  - Illness [Unknown]
  - Wrong dose [Recovered/Resolved]
  - Pain in jaw [Unknown]
  - Weight decreased [Not Recovered/Not Resolved]
  - Weight increased [Recovering/Resolving]
  - Myalgia [Unknown]
  - Cardiac failure congestive [Unknown]
  - Sluggishness [Unknown]
  - Feeling abnormal [Unknown]
  - Sleep disorder [Unknown]
  - Oxygen saturation decreased [Unknown]
  - Vertigo [Unknown]
  - Headache [Unknown]
  - Product dose omission issue [Recovered/Resolved]
  - Vomiting [Unknown]
  - Transient ischaemic attack [Unknown]
  - Pain [Not Recovered/Not Resolved]
  - Bone pain [Unknown]
  - Blood pressure decreased [Recovered/Resolved]
  - Somnolence [Recovering/Resolving]
  - Nausea [Unknown]
  - Dysarthria [Unknown]
  - Cerebral haemorrhage [Unknown]
  - Oedema [Unknown]
  - Muscle spasms [Not Recovered/Not Resolved]
  - Renal disorder [Unknown]
  - Respiratory distress [Unknown]
  - Hospitalisation [Unknown]
  - Dizziness postural [Unknown]

NARRATIVE: CASE EVENT DATE: 202003
